FAERS Safety Report 6151817-7 (Version None)
Quarter: 2009Q2

REPORT INFORMATION
  Report Type: 
  Country: None (occurrence: None)
  Receive Date: 20090410
  Receipt Date: 20090409
  Transmission Date: 20091009
  Serious: Yes (Hospitalization)
  Sender: FDA-Public Use
  Company Number: SE-ASTRAZENECA-2009SE01457

PATIENT
  Age: 73 Year
  Sex: Female

DRUGS (5)
  1. ATACAND [Suspect]
     Indication: HYPERTENSION
     Route: 048
     Dates: end: 20090201
  2. UNSPECIFIED DRUG [Suspect]
     Indication: HYPERTENSION
     Route: 048
     Dates: end: 20090201
  3. SALURES [Suspect]
     Indication: HYPERTENSION
     Route: 048
     Dates: end: 20090201
  4. FURIX [Suspect]
     Indication: HYPERTENSION
     Route: 048
     Dates: end: 20090201
  5. TEGRETOL [Concomitant]
     Route: 048

REACTIONS (1)
  - ORTHOSTATIC HYPOTENSION [None]
